FAERS Safety Report 7628270-7 (Version None)
Quarter: 2011Q3

REPORT INFORMATION
  Report Type: 
  Country: None (occurrence: None)
  Receive Date: 20110722
  Receipt Date: 20110711
  Transmission Date: 20111222
  Serious: Yes (Hospitalization)
  Sender: FDA-Public Use
  Company Number: US-JNJFOC-20110409309

PATIENT
  Sex: Female
  Weight: 86.18 kg

DRUGS (6)
  1. HYZAAR [Concomitant]
  2. PROTONIX [Suspect]
     Indication: GASTRIC DISORDER
  3. LEVOTHYROXINE SODIUM [Concomitant]
  4. BIRTH CONTROL PILLS (UNSPECIFIED) [Concomitant]
  5. STELARA [Suspect]
     Indication: PSORIASIS
     Route: 058
  6. HYDROXYZINE HCL [Concomitant]

REACTIONS (2)
  - URTICARIA [None]
  - PSORIASIS [None]
